FAERS Safety Report 6211454-2 (Version None)
Quarter: 2009Q2

REPORT INFORMATION
  Report Type: 
  Country: None (occurrence: None)
  Receive Date: 20090602
  Receipt Date: 20090526
  Transmission Date: 20091009
  Serious: Yes (Death)
  Sender: FDA-Public Use
  Company Number: FI-ROCHE-634486

PATIENT
  Sex: Female

DRUGS (10)
  1. PEGASYS [Suspect]
     Route: 058
     Dates: start: 20090213
  2. COPEGUS [Suspect]
     Route: 048
     Dates: start: 20090213
  3. PANACOD [Concomitant]
     Route: 048
  4. OPAMOX [Concomitant]
     Route: 048
  5. ZOLPIDEM TARTRATE [Concomitant]
     Dosage: REPORTED DRUG: SOMNAR (ZOLIDEM)
  6. ATARAX [Concomitant]
     Dosage: REPORTED DRUG: ATARAZ
  7. TIZANIDINE HCL [Concomitant]
  8. DOLAN [Concomitant]
  9. MELATONIN [Concomitant]
  10. XANOR [Concomitant]

REACTIONS (1)
  - DEATH [None]
